FAERS Safety Report 6825262-2 (Version None)
Quarter: 2010Q3

REPORT INFORMATION
  Report Type: 
  Country: None (occurrence: None)
  Receive Date: 20100708
  Receipt Date: 20061127
  Transmission Date: 20110219
  Serious: No
  Sender: FDA-Public Use
  Company Number: US-PFIZER INC-2006148215

PATIENT
  Sex: Female
  Weight: 56.7 kg

DRUGS (5)
  1. CHANTIX [Suspect]
     Indication: SMOKING CESSATION THERAPY
     Dates: start: 20060101
  2. COFFEE [Suspect]
     Dates: end: 20060101
  3. ZOLOFT [Concomitant]
  4. EVISTA [Concomitant]
  5. ATIVAN [Concomitant]

REACTIONS (3)
  - ASTHENIA [None]
  - DYSGEUSIA [None]
  - NAUSEA [None]
